FAERS Safety Report 16766939 (Version 1)
Quarter: 2019Q4

REPORT INFORMATION
  Report Type: Spontaneous
  Country: US (occurrence: US)
  Receive Date: 20190901
  Receipt Date: 20190901
  Transmission Date: 20200122
  Serious: Yes (Disabling, Other)
  Sender: FDA-Public Use
  Company Number: None

PATIENT
  Age: 61 Year
  Sex: Female
  Weight: 58.5 kg

DRUGS (1)
  1. CEFUROXIME AXETIL 500 MG, GENERIC FOR CEFTIN [Suspect]
     Active Substance: CEFUROXIME AXETIL
     Indication: PNEUMONIA
     Route: 048
     Dates: start: 20190608, end: 20190618

REACTIONS (4)
  - Swelling face [None]
  - Dizziness [None]
  - Paraesthesia [None]
  - Hypoaesthesia [None]
